FAERS Safety Report 6091207-9 (Version None)
Quarter: 2009Q1

REPORT INFORMATION
  Report Type: 
  Country: None (occurrence: None)
  Receive Date: 20090225
  Receipt Date: 20090219
  Transmission Date: 20090719
  Serious: Yes (Other)
  Sender: FDA-Public Use
  Company Number: US-BAYER-200911523NA

PATIENT
  Sex: Female

DRUGS (1)
  1. AVELOX [Suspect]
     Indication: DRUG USE FOR UNKNOWN INDICATION

REACTIONS (6)
  - ANAPHYLACTIC REACTION [None]
  - OEDEMA [None]
  - RASH [None]
  - SWELLING [None]
  - THROAT TIGHTNESS [None]
  - URTICARIA [None]
